FAERS Safety Report 16497790 (Version 1)
Quarter: 2019Q2

REPORT INFORMATION
  Report Type: Spontaneous
  Country: US (occurrence: US)
  Receive Date: 20190628
  Receipt Date: 20190628
  Transmission Date: 20190711
  Serious: Yes (Other)
  Sender: FDA-Public Use
  Company Number: US-BAYER-2019-119020

PATIENT
  Sex: Female

DRUGS (1)
  1. BETASERON [Suspect]
     Active Substance: INTERFERON BETA-1B
     Indication: MULTIPLE SCLEROSIS
     Dosage: UNK
     Dates: end: 2000

REACTIONS (5)
  - Injection site necrosis [Not Recovered/Not Resolved]
  - Injection site calcification [Not Recovered/Not Resolved]
  - Non-Hodgkin^s lymphoma stage IV [None]
  - Abdominal injury [None]
  - Skin disorder [Not Recovered/Not Resolved]
